FAERS Safety Report 4896648-0 (Version None)
Quarter: 2006Q1

REPORT INFORMATION
  Report Type: 
  Country: None (occurrence: None)
  Receive Date: 20060131
  Receipt Date: 20060126
  Transmission Date: 20060701
  Serious: Yes (Other)
  Sender: FDA-Public Use
  Company Number: US-GLAXOSMITHKLINE-A0590998A

PATIENT
  Age: 56 Year
  Sex: Female

DRUGS (1)
  1. COMMIT [Suspect]
     Indication: SMOKING CESSATION THERAPY
     Dosage: 2MG SEE DOSAGE TEXT

REACTIONS (3)
  - DEPENDENCE [None]
  - HICCUPS [None]
  - NICOTINE DEPENDENCE [None]
